FAERS Safety Report 16222468 (Version 1)
Quarter: 2019Q2

REPORT INFORMATION
  Report Type: Spontaneous
  Country: US (occurrence: US)
  Receive Date: 20190316
  Receipt Date: 20190316
  Transmission Date: 20190711
  Serious: No
  Sender: FDA-Public Use
  Company Number: None

PATIENT
  Sex: Female

DRUGS (1)
  1. MACRILEN [Suspect]
     Active Substance: MACIMORELIN
     Indication: HYPOPITUITARISM
     Route: 048
     Dates: start: 20181221

REACTIONS (1)
  - Fluid retention [None]
